FAERS Safety Report 21947159 (Version 1)
Quarter: 2023Q1

REPORT INFORMATION
  Report Type: Spontaneous
  Country: ES (occurrence: ES)
  Receive Date: 20230202
  Receipt Date: 20230202
  Transmission Date: 20230417
  Serious: Yes (Other)
  Sender: FDA-Public Use
  Company Number: None

PATIENT
  Age: 55 Year
  Sex: Female
  Weight: 45.8 kg

DRUGS (9)
  1. ZOLEDRONIC ACID [Suspect]
     Active Substance: ZOLEDRONIC ACID
     Indication: Osteoporosis
     Dosage: 1 ANNUAL DOSE, ROA-20045000, 2.1
     Route: 042
     Dates: start: 20191204, end: 20211210
  2. PROLIA [Suspect]
     Active Substance: DENOSUMAB
     Indication: Osteoporosis
     Dosage: 1 DOSE EVERY SIX MONTHS, SOLUTION FOR INJECTION IN PRE-FILLED SYRINGE, 1 PRE-FILLED SYRINGE OF 1 ML,
     Route: 058
     Dates: start: 20190913, end: 20191204
  3. Lormetazepam 2 mg pill [Concomitant]
     Indication: Insomnia
     Route: 065
     Dates: start: 20190820
  4. GENVOYA [Concomitant]
     Active Substance: COBICISTAT\ELVITEGRAVIR\EMTRICITABINE\TENOFOVIR ALAFENAMIDE FUMARATE
     Indication: HIV test positive
     Route: 065
     Dates: start: 20190325
  5. ABACAVIR/LAMIVUDINE DR. REDDYS 600 MG/300 MG FILM COATED TABLETS EFG [Concomitant]
     Indication: Product used for unknown indication
     Dosage: DR. REDDYS 600 MG/300 MG FILM COATED TABLETS EFG
     Route: 065
  6. CONDROSAN [Concomitant]
     Indication: Product used for unknown indication
     Route: 065
  7. LYRICA [Concomitant]
     Active Substance: PREGABALIN
     Indication: Product used for unknown indication
     Route: 065
  8. TIVICAY [Concomitant]
     Active Substance: DOLUTEGRAVIR SODIUM
     Indication: Product used for unknown indication
     Route: 065
  9. OPTRUMA [Concomitant]
     Active Substance: RALOXIFENE HYDROCHLORIDE
     Indication: Product used for unknown indication
     Route: 065

REACTIONS (12)
  - Myocardial ischaemia [Recovering/Resolving]
  - Disorientation [Recovering/Resolving]
  - Blood cholesterol increased [Recovering/Resolving]
  - Alopecia [Recovering/Resolving]
  - Amnesia [Recovering/Resolving]
  - Weight increased [Recovering/Resolving]
  - Acute myocardial infarction [Recovering/Resolving]
  - Fatigue [Recovering/Resolving]
  - Vomiting [Recovering/Resolving]
  - Arthralgia [Recovering/Resolving]
  - Osteonecrosis of jaw [Recovering/Resolving]
  - Paraesthesia [Recovering/Resolving]

NARRATIVE: CASE EVENT DATE: 20200203
